FAERS Safety Report 21740773 (Version 1)
Quarter: 2022Q4

REPORT INFORMATION
  Report Type: Spontaneous
  Country: US (occurrence: None)
  Receive Date: 20221215
  Receipt Date: 20221215
  Transmission Date: 20230113
  Serious: Yes (Hospitalization, Other)
  Sender: FDA-Public Use
  Company Number: None

PATIENT
  Age: 64 Year
  Sex: Male
  Weight: 123 kg

DRUGS (1)
  1. DAPTOMYCIN [Suspect]
     Active Substance: DAPTOMYCIN
     Indication: Post procedural infection
     Dosage: FREQUENCY : DAILY;?
     Route: 042
     Dates: start: 20220916, end: 20220921

REACTIONS (5)
  - Hyperkalaemia [None]
  - Acute kidney injury [None]
  - Rhabdomyolysis [None]
  - Blood creatinine increased [None]
  - Haemodialysis [None]

NARRATIVE: CASE EVENT DATE: 20220923
